FAERS Safety Report 18306947 (Version 1)
Quarter: 2020Q3

REPORT INFORMATION
  Report Type: Spontaneous
  Country: AU (occurrence: AU)
  Receive Date: 20200924
  Receipt Date: 20200924
  Transmission Date: 20201103
  Serious: Yes (Hospitalization, Other)
  Sender: FDA-Public Use
  Company Number: AU-009507513-2009AUS007727

PATIENT
  Age: 66 Year
  Sex: Male

DRUGS (6)
  1. KEYTRUDA [Suspect]
     Active Substance: PEMBROLIZUMAB
     Dosage: UNK
     Dates: start: 20200131, end: 20200221
  2. ATORVASTATIN [Concomitant]
     Active Substance: ATORVASTATIN
  3. LANTUS [Concomitant]
     Active Substance: INSULIN GLARGINE
     Dosage: UNK
     Dates: start: 20200131
  4. PERINDOPRIL [Concomitant]
     Active Substance: PERINDOPRIL
  5. LANTUS [Concomitant]
     Active Substance: INSULIN GLARGINE
     Dosage: UNK
     Dates: start: 20200221
  6. SITAGLIPTIN PHOSPHATE (+) METFORMIN HYDROCHLORIDE [Concomitant]
     Active Substance: METFORMIN HYDROCHLORIDE\SITAGLIPTIN PHOSPHATE

REACTIONS (13)
  - Tachycardia [Unknown]
  - Pulmonary embolism [Unknown]
  - Necrosis [Recovered/Resolved]
  - Hyperglycaemia [Unknown]
  - Hepatitis [Unknown]
  - Dry gangrene [Not Recovered/Not Resolved]
  - Mouth ulceration [Unknown]
  - Disseminated varicella zoster vaccine virus infection [Unknown]
  - Pneumonia [Unknown]
  - Musculoskeletal chest pain [Unknown]
  - Spinal cord injury sacral [Unknown]
  - Hypotension [Unknown]
  - Dermatitis [Unknown]

NARRATIVE: CASE EVENT DATE: 2020
